FAERS Safety Report 7301078-8 (Version None)
Quarter: 2011Q1

REPORT INFORMATION
  Report Type: 
  Country: None (occurrence: None)
  Receive Date: 20110111
  Receipt Date: 20100804
  Transmission Date: 20110831
  Serious: Yes (Other)
  Sender: FDA-Public Use
  Company Number: IDA-00400

PATIENT
  Age: 2 Year

DRUGS (1)
  1. PROPRANOLOL [Suspect]
     Dosage: DAILY DOSE: 2 MG/KG/DAY

REACTIONS (1)
  - HYPOGLYCAEMIA [None]
